FAERS Safety Report 10563112 (Version 1)
Quarter: 2014Q4

REPORT INFORMATION
  Report Type: Spontaneous
  Country: US (occurrence: None)
  Receive Date: 20141103
  Receipt Date: 20141103
  Transmission Date: 20150529
  Serious: No
  Sender: FDA-Public Use
  Company Number: None

PATIENT
  Age: 29 Year
  Sex: Female
  Weight: 59.88 kg

DRUGS (1)
  1. NUVARING [Suspect]
     Active Substance: ETHINYL ESTRADIOL\ETONOGESTREL
     Dosage: 3 WEEKS IN 1 WEEK
     Dates: start: 20140501, end: 20140705

REACTIONS (5)
  - Gastrointestinal pain [None]
  - Breast mass [None]
  - No therapeutic response [None]
  - Muscle spasms [None]
  - Dysmenorrhoea [None]

NARRATIVE: CASE EVENT DATE: 20140611
